FAERS Safety Report 7919201-0 (Version None)
Quarter: 2011Q4

REPORT INFORMATION
  Report Type: 
  Country: None (occurrence: None)
  Receive Date: 20111117
  Receipt Date: 20111111
  Transmission Date: 20120403
  Serious: Yes (Hospitalization)
  Sender: FDA-Public Use
  Company Number: US-BIOGENIDEC-2011BI035561

PATIENT
  Age: 71 Year
  Sex: Male

DRUGS (9)
  1. VYTORIN [Concomitant]
  2. PREVACID [Concomitant]
  3. ALTACE [Concomitant]
  4. COREG [Concomitant]
  5. TYSABRI [Suspect]
     Indication: MULTIPLE SCLEROSIS
     Route: 042
     Dates: start: 20090810, end: 20110812
  6. MIRAPEX [Concomitant]
  7. BACLOFEN [Concomitant]
  8. VALIUM [Concomitant]
  9. TYSABRI [Suspect]
     Route: 042

REACTIONS (1)
  - URINARY TRACT INFECTION [None]
